FAERS Safety Report 5252076-X (Version None)
Quarter: 2007Q1

REPORT INFORMATION
  Report Type: 
  Country: None (occurrence: None)
  Receive Date: 20070227
  Receipt Date: 20070112
  Transmission Date: 20070707
  Serious: Yes (Hospitalization)
  Sender: FDA-Public Use
  Company Number: DSA_29392_2007

PATIENT
  Age: 69 Year
  Sex: Male

DRUGS (3)
  1. MONO-TILDIEM [Suspect]
     Indication: ESSENTIAL HYPERTENSION
     Dosage: 200 MG Q DAY PO
     Route: 048
  2. AMLODIPINE [Suspect]
     Indication: ESSENTIAL HYPERTENSION
     Dosage: 10 MG Q DAY PO
     Route: 048
  3. TENORMIN [Concomitant]

REACTIONS (4)
  - ASTHENIA [None]
  - DEPRESSION [None]
  - HYPOTENSION [None]
  - MEMORY IMPAIRMENT [None]
